FAERS Safety Report 8564420-6 (Version None)
Quarter: 2012Q3

REPORT INFORMATION
  Report Type: 
  Country: None (occurrence: None)
  Receive Date: 20120723
  Receipt Date: 20120716
  Transmission Date: 20120928
  Serious: Yes (Other)
  Sender: FDA-Public Use
  Company Number: 2012070074

PATIENT
  Age: 51 Year
  Sex: Female
  Weight: 56.6996 kg

DRUGS (2)
  1. ASTEPRO [Suspect]
     Indication: RHINITIS ALLERGIC
     Dosage: (2 IN 1 D),IN
     Dates: start: 20101001, end: 20101001
  2. SYNTHROID [Concomitant]

REACTIONS (2)
  - NASAL DISCOMFORT [None]
  - TRIGEMINAL NEURALGIA [None]
